FAERS Safety Report 8015730-2 (Version None)
Quarter: 2011Q4

REPORT INFORMATION
  Report Type: 
  Country: None (occurrence: None)
  Receive Date: 20111230
  Receipt Date: 20111221
  Transmission Date: 20120403
  Serious: Yes (Death)
  Sender: FDA-Public Use
  Company Number: PHHY2011US15049

PATIENT
  Sex: Male

DRUGS (6)
  1. HYDROXYUREA [Concomitant]
     Indication: SICKLE CELL ANAEMIA
     Dosage: 1500 MG, UNK
     Route: 048
  2. EXJADE [Suspect]
     Indication: IRON OVERLOAD
     Dosage: 1500 MG, QD
     Route: 048
     Dates: start: 20100329, end: 20110207
  3. HYDROMORPHONE HCL [Concomitant]
     Dosage: 2-6 MG EVENING  4 HRS PRN
     Route: 048
  4. CHOLECALCIFEROL [Concomitant]
     Dosage: 400 MG, UNK
     Route: 048
  5. FOLIC ACID [Concomitant]
     Indication: SICKLE CELL ANAEMIA
     Dosage: 1 MG, UNK
     Route: 048
  6. NADOLOL [Concomitant]
     Indication: SUPRAVENTRICULAR TACHYCARDIA
     Dosage: 20 MG, UNK
     Route: 048

REACTIONS (3)
  - COMPLICATIONS OF TRANSPLANT SURGERY [None]
  - TRANSFUSION RELATED COMPLICATION [None]
  - BACTERIAL INFECTION [None]
